FAERS Safety Report 17438374 (Version 1)
Quarter: 2020Q1

REPORT INFORMATION
  Report Type: Spontaneous
  Country: TR (occurrence: TR)
  Receive Date: 20200220
  Receipt Date: 20200220
  Transmission Date: 20200409
  Serious: Yes (Other)
  Sender: FDA-Public Use
  Company Number: TR-TEVA-2020-TR-1188954

PATIENT
  Age: 3 Year
  Sex: Male
  Weight: 22 kg

DRUGS (1)
  1. BIOMENT-BID 400/57 FORTE [Suspect]
     Active Substance: AMOXICILLIN\CLAVULANATE POTASSIUM
     Indication: PHARYNGITIS
     Dosage: 5 ML DAILY;
     Route: 048
     Dates: start: 20200125, end: 20200128

REACTIONS (1)
  - Epistaxis [Unknown]

NARRATIVE: CASE EVENT DATE: 20200125
